FAERS Safety Report 18268260 (Version 1)
Quarter: 2020Q3

REPORT INFORMATION
  Report Type: Spontaneous
  Country: GB (occurrence: GB)
  Receive Date: 20200915
  Receipt Date: 20200915
  Transmission Date: 20201103
  Serious: Yes (Other)
  Sender: FDA-Public Use
  Company Number: GB-TEVA-2020-GB-1826752

PATIENT
  Age: 55 Year
  Sex: Female
  Weight: 88.9 kg

DRUGS (4)
  1. CANDESARTAN. [Concomitant]
     Active Substance: CANDESARTAN
  2. DIAZEPAM. [Concomitant]
     Active Substance: DIAZEPAM
     Dosage: (OCCASIONALLY) RARELY TAKEN
  3. DULOXETINE. [Suspect]
     Active Substance: DULOXETINE
     Indication: FIBROMYALGIA
     Dosage: 60MG
     Route: 048
     Dates: start: 20130801, end: 20200801
  4. PARACETAMOL AND CODEINE PHOSPHATE [Concomitant]
     Active Substance: ACETAMINOPHEN\CODEINE PHOSPHATE
     Dosage: 2 DOSAGE FORMS DAILY; AT NIGHT, 2 DOSAGE FORMS

REACTIONS (7)
  - Nocturia [Recovered/Resolved]
  - Snoring [Recovered/Resolved]
  - Withdrawal syndrome [Recovered/Resolved]
  - Blood pressure increased [Recovering/Resolving]
  - Sleep disorder [Recovering/Resolving]
  - Heart rate increased [Recovering/Resolving]
  - Amnesia [Recovering/Resolving]

NARRATIVE: CASE EVENT DATE: 20130801
